FAERS Safety Report 14210732 (Version 1)
Quarter: 2017Q4

REPORT INFORMATION
  Report Type: Not Available
  Country: None (occurrence: US)
  Receive Date: 20171121
  Receipt Date: 20171121
  Transmission Date: 20180321
  Serious: No
  Sender: FDA-Public Use
  Company Number: US-AKORN-68485

PATIENT
  Sex: Female

DRUGS (1)
  1. TIMOLOL MALEATE 0.5% OPHTHALMIC SOUTION [Suspect]
     Active Substance: TIMOLOL MALEATE

REACTIONS (1)
  - Drug intolerance [Unknown]
